FAERS Safety Report 6821804-1 (Version None)
Quarter: 2010Q3

REPORT INFORMATION
  Report Type: 
  Country: None (occurrence: None)
  Receive Date: 20100707
  Receipt Date: 20100707
  Transmission Date: 20110219
  Serious: No
  Sender: FDA-Public Use
  Company Number: None

PATIENT
  Sex: Male

DRUGS (2)
  1. HYDROCORTISONE [Suspect]
     Indication: HYPOPITUITARISM
     Dosage: 25 MG TID PO
     Route: 048
     Dates: start: 20100326
  2. HYDROCORTISONE [Suspect]
     Indication: ADRENAL INSUFFICIENCY

REACTIONS (5)
  - ADRENAL DISORDER [None]
  - LETHARGY [None]
  - PRODUCT SUBSTITUTION ISSUE [None]
  - SLUGGISHNESS [None]
  - UNRESPONSIVE TO STIMULI [None]
